FAERS Safety Report 5020884-6 (Version None)
Quarter: 2006Q2

REPORT INFORMATION
  Report Type: 
  Country: None (occurrence: None)
  Receive Date: 20060606
  Receipt Date: 20060606
  Transmission Date: 20061013
  Serious: Yes (Hospitalization, Other)
  Sender: FDA-Public Use
  Company Number: None

PATIENT
  Age: 72 Year
  Sex: Male
  Weight: 68 kg

DRUGS (8)
  1. CEFEPIME [Suspect]
     Indication: URINARY TRACT INFECTION
     Dosage: 2 GRAMS EVERY 12 HOURS IV
     Route: 042
     Dates: start: 20060517, end: 20060519
  2. ALBUTEROL [Concomitant]
  3. HALOPERIDOL [Concomitant]
  4. IPRATROPRIME [Concomitant]
  5. PANTOPRAZOLE [Concomitant]
  6. THAMINE [Concomitant]
  7. VANCOMYCIN [Concomitant]
  8. POTASSIUM CHLORIDE [Concomitant]

REACTIONS (1)
  - CONVULSION [None]
